FAERS Safety Report 4296598-7 (Version None)
Quarter: 2004Q1

REPORT INFORMATION
  Report Type: 
  Country: None (occurrence: None)
  Receive Date: 20040217
  Receipt Date: 20040211
  Transmission Date: 20041129
  Serious: Yes (Life-Threatening, Hospitalization)
  Sender: FDA-Public Use
  Company Number: FR-GLAXOSMITHKLINE-B0322998A

PATIENT
  Age: 34 Year
  Sex: Male

DRUGS (2)
  1. IMIJECT [Suspect]
     Indication: MIGRAINE
     Dosage: 6MG FOUR TIMES PER DAY
     Route: 058
     Dates: start: 20031108, end: 20031129
  2. ISOPTIN [Suspect]
     Indication: MIGRAINE
     Dosage: 720MG PER DAY
     Route: 048

REACTIONS (9)
  - ANOXIA [None]
  - CHEST PAIN [None]
  - COMA [None]
  - DRUG INEFFECTIVE [None]
  - ENCEPHALOPATHY [None]
  - MEDICATION ERROR [None]
  - MYDRIASIS [None]
  - MYOCARDIAL INFARCTION [None]
  - OVERDOSE [None]
